FAERS Safety Report 17584829 (Version 1)
Quarter: 2020Q1

REPORT INFORMATION
  Report Type: Spontaneous
  Country: FR (occurrence: FR)
  Receive Date: 20200326
  Receipt Date: 20200326
  Transmission Date: 20200409
  Serious: Yes (Life-Threatening, Hospitalization)
  Sender: FDA-Public Use
  Company Number: FR-PFIZER INC-2020127118

PATIENT
  Age: 14 Year
  Sex: Female
  Weight: 55 kg

DRUGS (4)
  1. TRINORDIOL [Suspect]
     Active Substance: ETHINYL ESTRADIOL\LEVONORGESTREL
     Indication: ORAL CONTRACEPTION
     Dosage: 21 DF, EVERY 28 DAYS
     Route: 048
     Dates: end: 20200130
  2. CURACNE [Concomitant]
     Active Substance: ISOTRETINOIN
     Dosage: UNK
  3. ROACCUTANE [Concomitant]
     Active Substance: ISOTRETINOIN
     Dosage: UNK
  4. OPTIDRIL [Suspect]
     Active Substance: ETHINYL ESTRADIOL\LEVONORGESTREL
     Indication: ORAL CONTRACEPTION
     Dosage: 21 DF, EVERY 28 DAYS
     Route: 048
     Dates: start: 202001, end: 20200305

REACTIONS (3)
  - Pulmonary embolism [Not Recovered/Not Resolved]
  - Off label use [Unknown]
  - Contraindicated product prescribed [Unknown]

NARRATIVE: CASE EVENT DATE: 20200301
